FAERS Safety Report 16065406 (Version 4)
Quarter: 2019Q2

REPORT INFORMATION
  Report Type: Report from Study
  Country: FR (occurrence: FR)
  Receive Date: 20190313
  Receipt Date: 20190409
  Transmission Date: 20190711
  Serious: Yes (Other)
  Sender: FDA-Public Use
  Company Number: FR-VIFOR (INTERNATIONAL) INC.-VIT-2019-02132

PATIENT
  Sex: Male
  Weight: 69 kg

DRUGS (51)
  1. VELPHORO [Suspect]
     Active Substance: FERRIC OXYHYDROXIDE
     Route: 048
     Dates: start: 20180909
  2. RENVELA [Concomitant]
     Active Substance: SEVELAMER CARBONATE
     Dates: start: 20160603, end: 20161214
  3. LANZOR [Concomitant]
     Active Substance: LANSOPRAZOLE
     Indication: GASTRITIS PROPHYLAXIS
     Dates: start: 20130122
  4. LANZOR [Concomitant]
     Active Substance: LANSOPRAZOLE
     Indication: ULCER
  5. VENOFER [Concomitant]
     Active Substance: IRON SUCROSE
     Route: 042
     Dates: start: 20180308, end: 20180405
  6. VENOFER [Concomitant]
     Active Substance: IRON SUCROSE
     Route: 042
     Dates: start: 20180405, end: 20180802
  7. ZYMAD [Concomitant]
     Active Substance: CHOLECALCIFEROL
     Dates: start: 20170413, end: 20170505
  8. MIRCERA [Concomitant]
     Active Substance: METHOXY POLYETHYLENE GLYCOL-EPOETIN BETA
     Dates: start: 20170607, end: 20170710
  9. ROCALTROL [Concomitant]
     Active Substance: CALCITRIOL
     Indication: CHRONIC KIDNEY DISEASE
     Dates: start: 20180212, end: 20180706
  10. ROCALTROL [Concomitant]
     Active Substance: CALCITRIOL
     Dates: start: 20180308
  11. VELPHORO [Suspect]
     Active Substance: FERRIC OXYHYDROXIDE
     Indication: HYPERPHOSPHATAEMIA
     Route: 048
     Dates: start: 20170505
  12. VENOFER [Concomitant]
     Active Substance: IRON SUCROSE
     Route: 042
     Dates: start: 20181112, end: 20190107
  13. VENOFER [Concomitant]
     Active Substance: IRON SUCROSE
     Route: 042
     Dates: start: 20190107
  14. ZYMAD [Concomitant]
     Active Substance: CHOLECALCIFEROL
     Dates: start: 20170505, end: 20170908
  15. MIRCERA [Concomitant]
     Active Substance: METHOXY POLYETHYLENE GLYCOL-EPOETIN BETA
     Indication: NEPHROGENIC ANAEMIA
     Dates: start: 20170224, end: 20170607
  16. MIRCERA [Concomitant]
     Active Substance: METHOXY POLYETHYLENE GLYCOL-EPOETIN BETA
     Dates: start: 20181112
  17. MIMPARA [Concomitant]
     Active Substance: CINACALCET HYDROCHLORIDE
     Indication: RENAL FAILURE
     Dates: start: 20171110, end: 20180110
  18. MIMPARA [Concomitant]
     Active Substance: CINACALCET HYDROCHLORIDE
     Indication: CHRONIC KIDNEY DISEASE
     Dates: start: 20180411, end: 20180910
  19. MIMPARA [Concomitant]
     Active Substance: CINACALCET HYDROCHLORIDE
     Dates: start: 20180308, end: 20181003
  20. ROCALTROL [Concomitant]
     Active Substance: CALCITRIOL
     Dates: start: 20180706, end: 20180802
  21. DUOPLAVIN [Concomitant]
     Active Substance: ASPIRIN\CLOPIDOGREL
     Indication: STENT PLACEMENT
     Dates: start: 20180330, end: 20180625
  22. BRILIQUE [Concomitant]
     Active Substance: TICAGRELOR
     Indication: PSEUDOPORPHYRIA
     Dates: start: 20180625
  23. RENAGEL [Concomitant]
     Active Substance: SEVELAMER HYDROCHLORIDE
     Indication: CHRONIC KIDNEY DISEASE
  24. VELPHORO [Suspect]
     Active Substance: FERRIC OXYHYDROXIDE
     Route: 048
     Dates: start: 20181206, end: 20190107
  25. ZYMAD [Concomitant]
     Active Substance: CHOLECALCIFEROL
     Dates: start: 20170908, end: 20171004
  26. MIMPARA [Concomitant]
     Active Substance: CINACALCET HYDROCHLORIDE
     Indication: HYPERPARATHYROIDISM
     Dates: start: 20171012, end: 20171110
  27. ROCALTROL [Concomitant]
     Active Substance: CALCITRIOL
     Dates: start: 20180802
  28. ROCALTROL [Concomitant]
     Active Substance: CALCITRIOL
     Dates: start: 20180110, end: 20180308
  29. RENAGEL [Concomitant]
     Active Substance: SEVELAMER HYDROCHLORIDE
     Indication: HYPERPHOSPHATAEMIA
     Dates: start: 20190107
  30. RENVELA [Concomitant]
     Active Substance: SEVELAMER CARBONATE
     Indication: CHRONIC KIDNEY DISEASE
     Dates: start: 20161214, end: 20170308
  31. ZYMAD [Concomitant]
     Active Substance: CHOLECALCIFEROL
     Indication: VITAMIN D DEFICIENCY
     Dates: start: 20160603, end: 20170109
  32. ZYMAD [Concomitant]
     Active Substance: CHOLECALCIFEROL
     Dates: start: 20171004, end: 20180214
  33. MIRCERA [Concomitant]
     Active Substance: METHOXY POLYETHYLENE GLYCOL-EPOETIN BETA
     Dates: start: 20170710, end: 20170804
  34. MIRCERA [Concomitant]
     Active Substance: METHOXY POLYETHYLENE GLYCOL-EPOETIN BETA
     Dates: start: 20180405, end: 20180608
  35. MIRCERA [Concomitant]
     Active Substance: METHOXY POLYETHYLENE GLYCOL-EPOETIN BETA
     Dates: start: 20180608, end: 20180706
  36. MIRCERA [Concomitant]
     Active Substance: METHOXY POLYETHYLENE GLYCOL-EPOETIN BETA
     Dates: start: 20180706, end: 20181112
  37. FER MYLAN [Concomitant]
     Indication: NEPHROGENIC ANAEMIA
     Dates: start: 20161109, end: 20170202
  38. FER MYLAN [Concomitant]
     Indication: CHRONIC KIDNEY DISEASE
     Dates: start: 20170405, end: 20170421
  39. VELPHORO [Suspect]
     Active Substance: FERRIC OXYHYDROXIDE
     Route: 048
     Dates: start: 20180912
  40. VENOFER [Concomitant]
     Active Substance: IRON SUCROSE
     Indication: NEPHROGENIC ANAEMIA
     Route: 042
     Dates: start: 20160720, end: 20161109
  41. VENOFER [Concomitant]
     Active Substance: IRON SUCROSE
     Route: 042
     Dates: start: 20180802, end: 20181112
  42. ZYMAD [Concomitant]
     Active Substance: CHOLECALCIFEROL
     Indication: CHRONIC KIDNEY DISEASE
     Dates: start: 20170109, end: 20170413
  43. ZYMAD [Concomitant]
     Active Substance: CHOLECALCIFEROL
     Dates: start: 20180214
  44. MIRCERA [Concomitant]
     Active Substance: METHOXY POLYETHYLENE GLYCOL-EPOETIN BETA
     Dates: start: 20170804, end: 20180405
  45. FER MYLAN [Concomitant]
     Dates: start: 20171012, end: 20180308
  46. MIMPARA [Concomitant]
     Active Substance: CINACALCET HYDROCHLORIDE
     Dates: start: 20180110, end: 20180308
  47. DUOPLAVIN [Concomitant]
     Active Substance: ASPIRIN\CLOPIDOGREL
     Indication: ANGIOPLASTY
  48. RENVELA [Concomitant]
     Active Substance: SEVELAMER CARBONATE
     Indication: HYPERPHOSPHATAEMIA
     Dates: start: 20170308, end: 20170505
  49. FER MYLAN [Concomitant]
     Dates: start: 20170421, end: 20170505
  50. FER MYLAN [Concomitant]
     Dates: start: 20170710, end: 20170804
  51. FER MYLAN [Concomitant]
     Dates: start: 20170804, end: 20171012

REACTIONS (2)
  - Pseudoporphyria [Recovered/Resolved]
  - Skin disorder [Recovered/Resolved]

NARRATIVE: CASE EVENT DATE: 20190107
